FAERS Safety Report 7069685-8 (Version None)
Quarter: 2010Q4

REPORT INFORMATION
  Report Type: 
  Country: None (occurrence: None)
  Receive Date: 20101028
  Receipt Date: 20100423
  Transmission Date: 20110411
  Serious: No
  Sender: FDA-Public Use
  Company Number: US-WYE-H14780310

PATIENT
  Sex: Female

DRUGS (2)
  1. EFFEXOR [Suspect]
     Dosage: UNKNOWN DOSE, WAS JUST INCREASED
  2. GEODON [Suspect]
     Dosage: UNKNOWN DOSE, DOSE WAS JUST INCREASED

REACTIONS (1)
  - RASH [None]
